FAERS Safety Report 11636394 (Version 3)
Quarter: 2015Q4

REPORT INFORMATION
  Report Type: Spontaneous
  Country: US (occurrence: US)
  Receive Date: 20151016
  Receipt Date: 20151112
  Transmission Date: 20160304
  Serious: Yes (Other)
  Sender: FDA-Public Use
  Company Number: US-ASTELLAS-2015US035361

PATIENT
  Sex: Female

DRUGS (1)
  1. MYRBETRIQ [Suspect]
     Active Substance: MIRABEGRON
     Indication: BLADDER DISORDER
     Route: 065
     Dates: start: 20150902, end: 20150911

REACTIONS (7)
  - Gait disturbance [Recovering/Resolving]
  - Oxygen saturation decreased [Recovering/Resolving]
  - Dyspnoea [Recovering/Resolving]
  - Pharyngeal oedema [Recovering/Resolving]
  - Obstructive airways disorder [Recovering/Resolving]
  - Chronic obstructive pulmonary disease [Not Recovered/Not Resolved]
  - Asthenia [Recovering/Resolving]
